FAERS Safety Report 9903976 (Version 1)
Quarter: 2014Q1

REPORT INFORMATION
  Report Type: Spontaneous
  Country: US (occurrence: US)
  Receive Date: 20140218
  Receipt Date: 20140218
  Transmission Date: 20141002
  Serious: No
  Sender: FDA-Public Use
  Company Number: US-BIOGENIDEC-2014BI012052

PATIENT
  Sex: Female

DRUGS (6)
  1. TECFIDERA [Suspect]
     Indication: MULTIPLE SCLEROSIS
     Route: 048
     Dates: start: 20131227
  2. SYNTHROID [Concomitant]
  3. PRILOSEC [Concomitant]
  4. AMAMDINE [Concomitant]
  5. VITAMIN B [Concomitant]
  6. VITAMIN D [Concomitant]

REACTIONS (1)
  - Constipation [Unknown]
